FAERS Safety Report 18204920 (Version 1)
Quarter: 2020Q3

REPORT INFORMATION
  Report Type: Spontaneous
  Country: FR (occurrence: FR)
  Receive Date: 20200828
  Receipt Date: 20200828
  Transmission Date: 20201103
  Serious: Yes (Other)
  Sender: FDA-Public Use
  Company Number: FR-AMGEN-FRASP2020138721

PATIENT
  Age: 40 Year
  Sex: Female

DRUGS (2)
  1. PROCORALAN [Suspect]
     Active Substance: IVABRADINE
     Indication: SINUS TACHYCARDIA
     Dosage: 15 MG, QD
     Route: 048
     Dates: start: 20200615, end: 20200717
  2. PROCORALAN [Suspect]
     Active Substance: IVABRADINE
     Dosage: UNK
     Route: 065

REACTIONS (3)
  - Hypotension [Recovering/Resolving]
  - Asthenia [Recovering/Resolving]
  - Off label use [Unknown]

NARRATIVE: CASE EVENT DATE: 202006
